FAERS Safety Report 7651037-0 (Version None)
Quarter: 2011Q3

REPORT INFORMATION
  Report Type: 
  Country: None (occurrence: None)
  Receive Date: 20110802
  Receipt Date: 20110725
  Transmission Date: 20111222
  Serious: Yes (Disabling, Other)
  Sender: FDA-Public Use
  Company Number: DE-TEVA-287452GER

PATIENT
  Sex: Female
  Weight: 80 kg

DRUGS (7)
  1. COPAXONE [Suspect]
     Indication: MULTIPLE SCLEROSIS
     Dosage: 20 MILLIGRAM; 0 DF - 0 DF - 1 DF A DAY
     Route: 058
  2. DYAZIDE [Concomitant]
     Dosage: 1 DOSAGE FORMS; 1 DF - 0 DF - 0 DF A DAY
  3. CITALOPRAM [Concomitant]
     Dosage: 40 MILLIGRAM; 2 DF - 0 DF - 0 DF A DAY
  4. FRAXIPARIN (NADROPARIN CALCIUM) [Concomitant]
     Indication: THROMBOSIS PROPHYLAXIS
     Route: 058
  5. PERAZINE [Concomitant]
     Dosage: 1/2 DF - 1/2 DF - 1 DF A DAY
  6. TOLTERODINE TARTRATE [Concomitant]
     Dosage: 2 DOSAGE FORMS; 1 DF- 0 DF -1 DF A DAY
  7. NOVANOX (NITRAZEPAM) [Concomitant]
     Dosage: 1 DOSAGE FORMS; 0 DF - 0 DF - 0 DF- 1 DF A DAY

REACTIONS (1)
  - LIP AND/OR ORAL CAVITY CANCER [None]
